FAERS Safety Report 7381443-3 (Version None)
Quarter: 2011Q1

REPORT INFORMATION
  Report Type: 
  Country: None (occurrence: None)
  Receive Date: 20110329
  Receipt Date: 20110324
  Transmission Date: 20110831
  Serious: Yes (Other)
  Sender: FDA-Public Use
  Company Number: DE-PFIZER INC-2011065494

PATIENT
  Age: 90 Year
  Sex: Female

DRUGS (3)
  1. LYRICA [Suspect]
     Indication: PAIN
     Dosage: 50 MG, UNK
     Dates: end: 20110301
  2. VALORON N RETARD [Suspect]
     Dosage: 50 MG, 2X/DAY
     Dates: start: 20110301
  3. VALORON N RETARD [Suspect]
     Indication: PAIN
     Dosage: 50 MG, 1X/DAY
     Dates: end: 20110301

REACTIONS (2)
  - HYPERSOMNIA [None]
  - LOSS OF CONSCIOUSNESS [None]
